FAERS Safety Report 9524721 (Version 1)
Quarter: 2013Q3

REPORT INFORMATION
  Report Type: Spontaneous
  Country: NL (occurrence: NL)
  Receive Date: 20130916
  Receipt Date: 20130916
  Transmission Date: 20140515
  Serious: Yes (Other)
  Sender: FDA-Public Use
  Company Number: PHHY2013NL100609

PATIENT
  Sex: Male

DRUGS (2)
  1. SEEBRI BREEZHALER [Suspect]
     Dosage: 1 DF, QD
     Dates: start: 20130809
  2. HIROBRIZ BREEZHALER [Suspect]
     Dosage: 1 DF, QD

REACTIONS (3)
  - Haemorrhage [Unknown]
  - Contusion [Unknown]
  - Pruritus [Unknown]
